FAERS Safety Report 8900138 (Version 1)
Quarter: 2012Q4

REPORT INFORMATION
  Report Type: 
  Country: US (occurrence: US)
  Receive Date: 20121109
  Receipt Date: 20121109
  Transmission Date: 20130627
  Serious: No
  Sender: FDA-Public Use
  Company Number: US-009507513-1211USA001311

PATIENT
  Age: 65 Year
  Sex: Male

DRUGS (4)
  1. VICTRELIS [Suspect]
     Indication: HEPATITIS C
     Dosage: 200mg, 4 capsules ,tid
     Route: 048
     Dates: start: 20120504, end: 201210
  2. PEGASYS [Suspect]
  3. RIBAPAK [Suspect]
  4. NEUPOGEN [Concomitant]

REACTIONS (1)
  - Drug ineffective [Unknown]
